FAERS Safety Report 19912155 (Version 2)
Quarter: 2021Q4

REPORT INFORMATION
  Report Type: Spontaneous
  Country: US (occurrence: US)
  Receive Date: 20211004
  Receipt Date: 20211027
  Transmission Date: 20220303
  Serious: Yes (Hospitalization)
  Sender: FDA-Public Use
  Company Number: US-DRREDDYS-SPO/USA/21/0142251

PATIENT
  Age: 52 Year
  Sex: Female

DRUGS (2)
  1. FENTANYL CITRATE [Suspect]
     Active Substance: FENTANYL CITRATE
     Indication: Pain
     Dosage: INTRATHECAL OPIOID PUMP
  2. BUPIVACAINE [Suspect]
     Active Substance: BUPIVACAINE
     Indication: Pain
     Dosage: INTRATHECAL OPIOID PUMP (MEDTRONIC)

REACTIONS (2)
  - Arachnoid web [Recovered/Resolved]
  - Nervous system disorder [Recovered/Resolved]
